FAERS Safety Report 6368936-2 (Version None)
Quarter: 2009Q3

REPORT INFORMATION
  Report Type: 
  Country: None (occurrence: None)
  Receive Date: 20090916
  Receipt Date: 20090908
  Transmission Date: 20100115
  Serious: Yes (Hospitalization)
  Sender: FDA-Public Use
  Company Number: ADR19582009

PATIENT
  Age: 15 Year
  Sex: Female

DRUGS (2)
  1. SERTRALINE HCL [Suspect]
  2. PARACETAMOL [Concomitant]

REACTIONS (3)
  - HYPOKALAEMIA [None]
  - INTENTIONAL OVERDOSE [None]
  - VOMITING [None]
